FAERS Safety Report 21807267 (Version 1)
Quarter: 2023Q1

REPORT INFORMATION
  Report Type: Spontaneous
  Country: CN (occurrence: CN)
  Receive Date: 20230102
  Receipt Date: 20230102
  Transmission Date: 20230418
  Serious: Yes (Hospitalization, Other)
  Sender: FDA-Public Use
  Company Number: None

PATIENT
  Age: 48 Year
  Sex: Female
  Weight: 55 kg

DRUGS (8)
  1. CYCLOPHOSPHAMIDE [Suspect]
     Active Substance: CYCLOPHOSPHAMIDE
     Indication: Breast cancer female
     Dosage: 900 MG, Q14D, DILUTED WITH 0.9% SODIUM CHLORIDE (100 ML), 1 CYCLE OF CHEMOTHERAPY, D1
     Route: 041
     Dates: start: 20221209, end: 20221209
  2. CYCLOPHOSPHAMIDE [Suspect]
     Active Substance: CYCLOPHOSPHAMIDE
     Indication: Neoplasm
  3. CYCLOPHOSPHAMIDE [Suspect]
     Active Substance: CYCLOPHOSPHAMIDE
     Indication: Chemotherapy
  4. DEXTROSE MONOHYDRATE [Suspect]
     Active Substance: DEXTROSE MONOHYDRATE
     Indication: Medication dilution
     Dosage: 100 ML, QD, (DOSAGE FORM: INJECTION), USED TO DILUTE PIRARUBICIN HYDROCHLORIDE (90 MG), 1 CYCLE OF C
     Route: 041
     Dates: start: 20221209, end: 20221209
  5. SODIUM CHLORIDE [Suspect]
     Active Substance: SODIUM CHLORIDE
     Indication: Medication dilution
     Dosage: 100 ML, Q14D (DOSAGE FORM: INJECTION), USED TO DILUTE CYCLOPHOSPHAMIDE (900 MG), 1 CYCLE OF CHEMOTHE
     Route: 041
     Dates: start: 20221209, end: 20221209
  6. PIRARUBICIN HYDROCHLORIDE [Suspect]
     Active Substance: PIRARUBICIN HYDROCHLORIDE
     Indication: Breast cancer female
     Dosage: 90 MG, QD, DILUTED WITH 5% GLUCOSE (100 ML), 1 CYCLE OF CHEMOTHERAPY, D1
     Route: 041
     Dates: start: 20221209, end: 20221209
  7. PIRARUBICIN HYDROCHLORIDE [Suspect]
     Active Substance: PIRARUBICIN HYDROCHLORIDE
     Indication: Neoplasm
  8. PIRARUBICIN HYDROCHLORIDE [Suspect]
     Active Substance: PIRARUBICIN HYDROCHLORIDE
     Indication: Chemotherapy

REACTIONS (1)
  - Myelosuppression [Recovered/Resolved]

NARRATIVE: CASE EVENT DATE: 20221215
